FAERS Safety Report 9500826 (Version 1)
Quarter: 2013Q1

REPORT INFORMATION
  Report Type: Spontaneous
  Country: US (occurrence: None)
  Receive Date: 20130107
  Receipt Date: 20130107
  Transmission Date: 20140127
  Serious: No
  Sender: FDA-Public Use
  Company Number: PHEH2012US017478

PATIENT
  Age: 61 Year
  Sex: Female
  Weight: 62.1 kg

DRUGS (16)
  1. GILENYA (FTY)CAPSULE, 0.5MG [Suspect]
     Indication: MULTIPLE SCLEROSIS
     Route: 048
     Dates: start: 20110119
  2. ALBUTEROL (SALBUTAMOL) [Concomitant]
  3. AMBIEN (ZOLPIDEM TARTRATE) [Concomitant]
  4. PROTONIX (PANTOPRAZOLE) [Concomitant]
  5. DIFLUCAN (FLUCONAZOLE) [Concomitant]
  6. DURAGESIC (FENTTANYL) [Concomitant]
  7. EFFEXOR (VENLAFAXINE HYDROCHLORIDE) UNKNOWN [Concomitant]
  8. SE-DONNA PB HYOS [Concomitant]
  9. EVOXAC (CEVIMELINE HYDROCHLORIDE) [Concomitant]
  10. GLIMEPIRIDE [Concomitant]
  11. LISINOPRIL (LISINOPRIL) [Concomitant]
  12. SYNTHROID (LEVOTHYROXINE SODIUM) [Concomitant]
  13. MIRALAX [Concomitant]
  14. PERCOCET [Concomitant]
  15. PRAVASTATIN (PRAVASTATIN) [Concomitant]
  16. XARELTO (RIVAROXABAN) [Concomitant]

REACTIONS (2)
  - Visual acuity reduced [None]
  - Vision blurred [None]
